FAERS Safety Report 18228679 (Version 1)
Quarter: 2020Q3

REPORT INFORMATION
  Report Type: Spontaneous
  Country: US (occurrence: US)
  Receive Date: 20200903
  Receipt Date: 20200903
  Transmission Date: 20201103
  Serious: No
  Sender: FDA-Public Use
  Company Number: US-BECTON DICKINSON-2019BDN00345

PATIENT
  Age: 30 Year
  Sex: Male

DRUGS (1)
  1. CHLORAPREP [Suspect]
     Active Substance: CHLORHEXIDINE GLUCONATE\ISOPROPYL ALCOHOL
     Dosage: UNK
     Route: 061
     Dates: start: 20190807, end: 20190807

REACTIONS (5)
  - Product package associated injury [Unknown]
  - Pain [Unknown]
  - Wound [Unknown]
  - Occupational exposure to product [Unknown]
  - Wound haemorrhage [Unknown]

NARRATIVE: CASE EVENT DATE: 20190807
